FAERS Safety Report 6272343-0 (Version None)
Quarter: 2009Q3

REPORT INFORMATION
  Report Type: 
  Country: None (occurrence: None)
  Receive Date: 20090717
  Receipt Date: 20090709
  Transmission Date: 20100115
  Serious: Yes (Other)
  Sender: FDA-Public Use
  Company Number: FR-SANOFI-SYNTHELABO-F01200900650

PATIENT
  Sex: Male

DRUGS (7)
  1. LEUCOVORIN CALCIUM [Suspect]
  2. CALCIUM [Concomitant]
     Dates: start: 20090317
  3. ONDANSETRON HCL [Concomitant]
     Dates: start: 20090317
  4. WYTENS [Concomitant]
  5. FLUOROURACIL [Suspect]
     Dosage: 2400 MG/M2
     Route: 042
     Dates: start: 20090514, end: 20090514
  6. BEVACIZUMAB [Suspect]
     Dosage: 5 MG/KG
     Route: 042
     Dates: start: 20090514, end: 20090514
  7. OXALIPLATIN [Suspect]
     Indication: COLORECTAL CANCER METASTATIC
     Dosage: 100 MG/M2
     Route: 042
     Dates: start: 20090528, end: 20090528

REACTIONS (1)
  - SEPTIC SHOCK [None]
